FAERS Safety Report 15686206 (Version 1)
Quarter: 2018Q4

REPORT INFORMATION
  Report Type: Spontaneous
  Country: US (occurrence: US)
  Receive Date: 20181204
  Receipt Date: 20181204
  Transmission Date: 20190205
  Serious: No
  Sender: FDA-Public Use
  Company Number: US-ASTRAZENECA-2018SE20546

PATIENT
  Sex: Female
  Weight: 54.4 kg

DRUGS (2)
  1. BEVESPI AEROSPHERE [Suspect]
     Active Substance: FORMOTEROL FUMARATE\GLYCOPYRROLATE
     Indication: DYSPNOEA
     Dosage: 9/4.8 TWO PUFFS TWO TIMES A DAY
     Route: 055
  2. BEVESPI AEROSPHERE [Suspect]
     Active Substance: FORMOTEROL FUMARATE\GLYCOPYRROLATE
     Indication: SCOLIOSIS
     Dosage: 9/4.8 TWO PUFFS TWO TIMES A DAY
     Route: 055

REACTIONS (6)
  - Visual acuity reduced [Unknown]
  - Intentional device misuse [Unknown]
  - Product use in unapproved indication [Unknown]
  - Off label use [Unknown]
  - Nervousness [Unknown]
  - Device malfunction [Unknown]
